FAERS Safety Report 4513592-9 (Version None)
Quarter: 2004Q4

REPORT INFORMATION
  Report Type: 
  Country: None (occurrence: None)
  Receive Date: 20041130
  Receipt Date: 20040809
  Transmission Date: 20050328
  Serious: No
  Sender: FDA-Public Use
  Company Number: US-GLAXOSMITHKLINE-A0521532A

PATIENT
  Age: 45 Year
  Sex: Female

DRUGS (5)
  1. WELLBUTRIN XL [Suspect]
     Indication: DEPRESSION
     Dosage: 300MG PER DAY
     Route: 048
     Dates: start: 20040201, end: 20040401
  2. LEXAPRO [Concomitant]
  3. IMITREX [Concomitant]
  4. TOPAMAX [Concomitant]
  5. FLEXERIL [Concomitant]

REACTIONS (1)
  - CYSTITIS INTERSTITIAL [None]
